FAERS Safety Report 6035111-0 (Version None)
Quarter: 2009Q1

REPORT INFORMATION
  Report Type: 
  Country: None (occurrence: None)
  Receive Date: 20090112
  Receipt Date: 20090105
  Transmission Date: 20090719
  Serious: No
  Sender: FDA-Public Use
  Company Number: US-B.I. PHARMACEUTICALS,INC./RIDGEFIELD-2009-BP-00089BP

PATIENT
  Age: 67 Year
  Sex: Female

DRUGS (5)
  1. MICARDIS [Suspect]
     Indication: HYPERTENSION
     Dosage: 40MG
     Route: 048
     Dates: start: 20081229, end: 20090105
  2. LASIX [Concomitant]
     Indication: FLUID RETENTION
  3. PRILOSEC [Concomitant]
     Indication: DYSPEPSIA
  4. POTASSIUM CHLORIDE [Concomitant]
  5. BENADRYL [Concomitant]

REACTIONS (4)
  - DIARRHOEA [None]
  - DYSPNOEA [None]
  - MUSCLE TIGHTNESS [None]
  - RESTLESSNESS [None]
